FAERS Safety Report 9900852 (Version 1)
Quarter: 2014Q1

REPORT INFORMATION
  Report Type: Spontaneous
  Country: US (occurrence: US)
  Receive Date: 20140217
  Receipt Date: 20140217
  Transmission Date: 20141002
  Serious: No
  Sender: FDA-Public Use
  Company Number: US-009507513-1402USA006126

PATIENT
  Age: 20 Year
  Sex: Female

DRUGS (1)
  1. IMPLANON [Suspect]
     Indication: CONTRACEPTION
     Dosage: UNK
     Route: 059
     Dates: end: 201401

REACTIONS (5)
  - Hypomenorrhoea [Unknown]
  - Menstrual disorder [Unknown]
  - Metrorrhagia [Unknown]
  - Amenorrhoea [Unknown]
  - Unintended pregnancy [Unknown]
